FAERS Safety Report 24643243 (Version 1)
Quarter: 2024Q4

REPORT INFORMATION
  Report Type: Spontaneous
  Country: US (occurrence: None)
  Receive Date: 20241120
  Receipt Date: 20241120
  Transmission Date: 20250115
  Serious: No
  Sender: Public
  Company Number: None

PATIENT
  Age: 69 Year
  Sex: Male
  Weight: 97.52 kg

DRUGS (14)
  1. VYVGART [Suspect]
     Active Substance: EFGARTIGIMOD ALFA-FCAB
     Indication: Myasthenia gravis
     Dosage: FREQUENCY : WEEKLY;?
     Route: 042
     Dates: start: 20241113
  2. CIALIS [Concomitant]
     Active Substance: TADALAFIL
  3. FLOMAX [Concomitant]
     Active Substance: TAMSULOSIN HYDROCHLORIDE
  4. MESTINON [Concomitant]
     Active Substance: PYRIDOSTIGMINE BROMIDE
  5. ATORVASTATIN CALCIUM [Concomitant]
     Active Substance: ATORVASTATIN CALCIUM
  6. Breo Ellipta Inhalation Aerosol Pow [Concomitant]
  7. Singulair Oral [Concomitant]
  8. PREDNISONE [Concomitant]
  9. VITAMIN C [Concomitant]
     Active Substance: ASCORBIC ACID
  10. PYRIDOSTIGMINE BROMIDE [Concomitant]
     Active Substance: PYRIDOSTIGMINE BROMIDE
  11. PYRIDOSTIGMINE BROMIDE [Concomitant]
     Active Substance: PYRIDOSTIGMINE BROMIDE
  12. Albuterol Sulfate Inhalation Nebuli [Concomitant]
  13. Caltrate 600+D3 Oral [Concomitant]
  14. Centrum Minis Men 50+ Oral [Concomitant]

REACTIONS (4)
  - Fatigue [None]
  - Nasopharyngitis [None]
  - Pain in extremity [None]
  - Disorientation [None]

NARRATIVE: CASE EVENT DATE: 20241113
